FAERS Safety Report 5340153-4 (Version None)
Quarter: 2007Q2

REPORT INFORMATION
  Report Type: 
  Country: None (occurrence: None)
  Receive Date: 20070405
  Receipt Date: 20061207
  Transmission Date: 20071010
  Serious: No
  Sender: FDA-Public Use
  Company Number: US200612001065

PATIENT
  Age: 17 Year
  Sex: Male

DRUGS (2)
  1. STRATTERA [Suspect]
     Indication: ATTENTION DEFICIT/HYPERACTIVITY DISORDER
     Dosage: SEE IMAGE
  2. CYMBALTA [Suspect]
     Dosage: SEE IMAGE

REACTIONS (3)
  - ABNORMAL BEHAVIOUR [None]
  - MEDICATION ERROR [None]
  - PRESCRIBED OVERDOSE [None]
